FAERS Safety Report 10269866 (Version 1)
Quarter: 2014Q2

REPORT INFORMATION
  Report Type: Spontaneous
  Country: US (occurrence: None)
  Receive Date: 20140627
  Receipt Date: 20140627
  Transmission Date: 20141212
  Serious: Yes (Disabling)
  Sender: FDA-Public Use
  Company Number: None

PATIENT
  Age: 61 Year
  Sex: Male
  Weight: 86.18 kg

DRUGS (2)
  1. IBUPROFEN [Suspect]
     Indication: ENDODONTIC PROCEDURE
     Dosage: 1 PILL FOUR TIMES DAILY TAKEN BY MOUTH
     Route: 048
     Dates: start: 20140311, end: 20140318
  2. IBUPROFEN [Suspect]
     Indication: PROCEDURAL PAIN
     Dosage: 1 PILL FOUR TIMES DAILY TAKEN BY MOUTH
     Route: 048
     Dates: start: 20140311, end: 20140318

REACTIONS (10)
  - Skin reaction [None]
  - Cyst [None]
  - Palpitations [None]
  - Arrhythmia [None]
  - Back pain [None]
  - Spinal disorder [None]
  - Condition aggravated [None]
  - Malaise [None]
  - Depression [None]
  - Exercise lack of [None]
